FAERS Safety Report 4407204-2 (Version None)
Quarter: 2004Q3

REPORT INFORMATION
  Report Type: 
  Country: None (occurrence: None)
  Receive Date: 20040721
  Receipt Date: 20040706
  Transmission Date: 20050211
  Serious: Yes (Disabling, Other)
  Sender: FDA-Public Use
  Company Number: USA040670141

PATIENT
  Age: 67 Year
  Sex: Female
  Weight: 80 kg

DRUGS (17)
  1. FORTEO [Suspect]
     Indication: OSTEOPOROSIS
     Dosage: 20 UG DAY
     Dates: start: 20040315
  2. PREDNISONE [Concomitant]
  3. POTASSIUM [Concomitant]
  4. MICRONASE [Concomitant]
  5. MAGNESIUM (MAGNESIUM ASPARTATE) [Concomitant]
  6. REGLAN [Concomitant]
  7. NORVASC [Concomitant]
  8. LASIX [Concomitant]
  9. TENORMIN (ATENOLOL EG) [Concomitant]
  10. TYLENOL W/ CODEINE NO. 3 [Concomitant]
  11. ACETYLSALICYLIC ACID SRT [Concomitant]
  12. FOSAMAX [Concomitant]
  13. TYLENOL EXTRA STRENGHT (PARACETAMOL) [Concomitant]
  14. CALCIUM [Concomitant]
  15. MULTI-VITAMIN [Concomitant]
  16. VITAMIN C [Concomitant]
  17. MAALOX [Concomitant]

REACTIONS (4)
  - CEREBRAL CYST [None]
  - CEREBROVASCULAR ACCIDENT [None]
  - HEMIPLEGIA [None]
  - OPHTHALMOPLEGIA [None]
